FAERS Safety Report 7861520 (Version 5)
Quarter: 2014Q4

REPORT INFORMATION
  Report Type: Report from Study
  Country: US (occurrence: US)
  Receive Date: 20110318
  Receipt Date: 20141218
  Transmission Date: 20150529
  Serious: Yes (Hospitalization, Other)
  Sender: FDA-Public Use
  Company Number: US-BIOGENIDEC-2011BI009660

PATIENT
  Age: 40 Year
  Sex: Female
  Weight: 74 kg

DRUGS (5)
  1. TYSABRI [Suspect]
     Active Substance: NATALIZUMAB
     Indication: MULTIPLE SCLEROSIS
     Route: 042
     Dates: start: 20091106
  2. DALFAMPRIDINE [Concomitant]
     Active Substance: DALFAMPRIDINE
     Route: 048
     Dates: start: 20100710
  3. CALCIUM PLUS D [Concomitant]
     Active Substance: CALCIUM\VITAMIN D
  4. VYVANSE [Concomitant]
     Active Substance: LISDEXAMFETAMINE DIMESYLATE
     Indication: MULTIPLE SCLEROSIS
  5. DESVENLAFAXINE. [Concomitant]
     Active Substance: DESVENLAFAXINE
     Route: 048
     Dates: start: 201012

REACTIONS (1)
  - Meningioma [Not Recovered/Not Resolved]

NARRATIVE: CASE EVENT DATE: 20110117
